FAERS Safety Report 12601121 (Version 8)
Quarter: 2017Q3

REPORT INFORMATION
  Report Type: Spontaneous
  Country: US (occurrence: US)
  Receive Date: 20160728
  Receipt Date: 20170721
  Transmission Date: 20171127
  Serious: Yes (Other)
  Sender: FDA-Public Use
  Company Number: PHHY2016US102363

PATIENT
  Sex: Female

DRUGS (4)
  1. ONDANSETRON HYDROCHLORIDE. [Suspect]
     Active Substance: ONDANSETRON HYDROCHLORIDE
     Indication: VOMITING IN PREGNANCY
     Dosage: 4 MG, QD
     Route: 048
     Dates: start: 201108, end: 201109
  2. ONDANSETRON HYDROCHLORIDE. [Suspect]
     Active Substance: ONDANSETRON HYDROCHLORIDE
     Dosage: 4 MG, QD
     Route: 048
     Dates: start: 201111, end: 201204
  3. ONDANSETRON [Suspect]
     Active Substance: ONDANSETRON
     Indication: VOMITING IN PREGNANCY
     Dosage: 4 MG, UNK
     Route: 042
     Dates: start: 20111106, end: 20111106
  4. ZOFRAN [Suspect]
     Active Substance: ONDANSETRON HYDROCHLORIDE
     Indication: VOMITING IN PREGNANCY
     Dosage: 4 MG/ 2 ML, UNK
     Route: 042
     Dates: start: 20111106, end: 20111206

REACTIONS (37)
  - Oropharyngeal pain [Unknown]
  - Bronchitis [Unknown]
  - Vaginal haemorrhage [Unknown]
  - Hyperlipidaemia [Unknown]
  - Pain in extremity [Unknown]
  - Asthma [Unknown]
  - Nasal congestion [Unknown]
  - Pharyngitis streptococcal [Unknown]
  - Fatigue [Unknown]
  - Diarrhoea [Unknown]
  - Limb injury [Unknown]
  - Palpitations [Unknown]
  - Anxiety [Unknown]
  - Obesity [Unknown]
  - Nasopharyngitis [Unknown]
  - Stress [Unknown]
  - Thyroid mass [Unknown]
  - Chills [Unknown]
  - Headache [Unknown]
  - Gastrooesophageal reflux disease [Unknown]
  - Goitre [Unknown]
  - Otitis media acute [Unknown]
  - Pyrexia [Unknown]
  - Pneumonia [Unknown]
  - Sinusitis [Unknown]
  - Sleep apnoea syndrome [Unknown]
  - Rhinorrhoea [Unknown]
  - Depression [Unknown]
  - Dizziness [Unknown]
  - Product use in unapproved indication [Unknown]
  - Upper respiratory tract infection [Unknown]
  - Cough [Unknown]
  - Maternal exposure during pregnancy [Unknown]
  - Panic attack [Unknown]
  - Ear pain [Unknown]
  - Migraine [Unknown]
  - Essential hypertension [Unknown]
